FAERS Safety Report 7495867-7 (Version None)
Quarter: 2011Q2

REPORT INFORMATION
  Report Type: 
  Country: None (occurrence: None)
  Receive Date: 20110523
  Receipt Date: 20110516
  Transmission Date: 20111010
  Serious: Yes (Other)
  Sender: FDA-Public Use
  Company Number: US-ALLERGAN-0902667US

PATIENT
  Age: 50 Year
  Sex: Female

DRUGS (4)
  1. RESTASIS [Suspect]
     Indication: DRY EYE
     Dosage: UNK, UNK
     Route: 047
     Dates: start: 20080606, end: 20080612
  2. PREDNISOLONE ACETATE [Suspect]
     Indication: PRODUCT USED FOR UNKNOWN INDICATION
  3. BANDAID CONTACT [Suspect]
     Indication: DRY EYE
  4. RESTASIS [Suspect]
     Indication: EYE PAIN
     Dosage: UNK, BID
     Route: 047
     Dates: start: 20081118, end: 20081126

REACTIONS (3)
  - EYE PAIN [None]
  - KERATITIS [None]
  - VISION BLURRED [None]
